FAERS Safety Report 5925561-2 (Version None)
Quarter: 2008Q4

REPORT INFORMATION
  Report Type: 
  Country: None (occurrence: None)
  Receive Date: 20081016
  Receipt Date: 20080207
  Transmission Date: 20090506
  Serious: Yes (Hospitalization)
  Sender: FDA-Public Use
  Company Number: TNZBE200800153

PATIENT
  Age: 25 Year
  Sex: Female
  Weight: 61 kg

DRUGS (3)
  1. INNOHEP [Suspect]
     Indication: AORTIC VALVE REPLACEMENT
     Dosage: 12000 IU, 1 IN 1 D, SUBCUTANEOUS, 14000 IU, 1 IN 1 D, SUBCUTANEOUS
     Route: 058
     Dates: start: 20050405, end: 20050409
  2. INNOHEP [Suspect]
     Indication: AORTIC VALVE REPLACEMENT
     Dosage: 12000 IU, 1 IN 1 D, SUBCUTANEOUS, 14000 IU, 1 IN 1 D, SUBCUTANEOUS
     Route: 058
     Dates: start: 20050415
  3. PHENPROCOUMON (PHENPROCOUMON) [Concomitant]

REACTIONS (3)
  - DRUG EXPOSURE DURING PREGNANCY [None]
  - MONOPARESIS [None]
  - NERVOUS SYSTEM DISORDER [None]
